FAERS Safety Report 8318967 (Version 4)
Quarter: 2014Q1

REPORT INFORMATION
  Report Type: Spontaneous
  Country: CA (occurrence: CA)
  Receive Date: 20120103
  Receipt Date: 20140214
  Transmission Date: 20141002
  Serious: Yes (Death)
  Sender: FDA-Public Use
  Company Number: CA-PFIZER INC-2011315927

PATIENT
  Age: 48 Year
  Sex: Female

DRUGS (2)
  1. SOMAVERT [Suspect]
     Indication: ACROMEGALY
     Dosage: 40 MG, UNK
     Route: 058
  2. SOMAVERT [Suspect]
     Indication: PITUITARY TUMOUR BENIGN

REACTIONS (1)
  - Lung neoplasm malignant [Fatal]
